FAERS Safety Report 7020342-3 (Version None)
Quarter: 2010Q3

REPORT INFORMATION
  Report Type: 
  Country: None (occurrence: None)
  Receive Date: 20100915
  Receipt Date: 20100915
  Transmission Date: 20110219
  Serious: Yes (Life-Threatening, Disabling)
  Sender: FDA-Public Use
  Company Number: None

PATIENT
  Sex: Male
  Weight: 81.6475 kg

DRUGS (1)
  1. CREON [Suspect]
     Indication: PANCREATITIS
     Dosage: 2 CAPS/MEAL + 1 DAILY PO
     Route: 048
     Dates: start: 20100805, end: 20100813

REACTIONS (1)
  - COLITIS [None]
